FAERS Safety Report 7171023-7 (Version None)
Quarter: 2010Q4

REPORT INFORMATION
  Report Type: 
  Country: None (occurrence: None)
  Receive Date: 20101123
  Receipt Date: 20100816
  Transmission Date: 20110411
  Serious: No
  Sender: FDA-Public Use
  Company Number: 017393

PATIENT
  Age: 44 Year
  Sex: Female
  Weight: 68.5 kg

DRUGS (1)
  1. CIMZIA [Suspect]
     Indication: CROHN'S DISEASE
     Dosage: (400 MG, 400 MG MONTHLY SUBCUTANEOUS)
     Route: 058

REACTIONS (1)
  - URINARY TRACT INFECTION [None]
